FAERS Safety Report 14545806 (Version 2)
Quarter: 2018Q2

REPORT INFORMATION
  Report Type: Spontaneous
  Country: US (occurrence: US)
  Receive Date: 20180219
  Receipt Date: 20180403
  Transmission Date: 20180711
  Serious: No
  Sender: FDA-Public Use
  Company Number: US-ASTRAZENECA-2018SE18656

PATIENT
  Sex: Female
  Weight: 66.2 kg

DRUGS (6)
  1. SEROQUEL [Suspect]
     Active Substance: QUETIAPINE FUMARATE
     Indication: BIPOLAR I DISORDER
     Dosage: GENERIC, 25MG, AT NIGHT
     Route: 048
     Dates: start: 201505
  2. SEROQUEL [Suspect]
     Active Substance: QUETIAPINE FUMARATE
     Indication: BIPOLAR I DISORDER
     Route: 048
     Dates: start: 20150215, end: 20150417
  3. SEROQUEL [Suspect]
     Active Substance: QUETIAPINE FUMARATE
     Indication: BIPOLAR I DISORDER
     Dosage: GENERIC SEROQUEL AT A REDUCED DOSE OF 150 MG AT NIGHT
     Route: 048
     Dates: start: 20180201, end: 20180314
  4. WELLBUTRIN [Concomitant]
     Active Substance: BUPROPION HYDROCHLORIDE
     Indication: WEIGHT DECREASED
     Route: 048
  5. SEROQUEL [Suspect]
     Active Substance: QUETIAPINE FUMARATE
     Indication: BIPOLAR I DISORDER
     Dosage: DOSE WAS INCREASED BY 25 MG MONTHLY UNTIL SHE GOT TO A DOSE OF 300 MG AT NIGHT
     Route: 048
  6. WELLBUTRIN [Concomitant]
     Active Substance: BUPROPION HYDROCHLORIDE
     Indication: DEPRESSION
     Route: 048

REACTIONS (9)
  - Insomnia [Unknown]
  - Malaise [Unknown]
  - Memory impairment [Unknown]
  - Weight increased [Unknown]
  - Loss of consciousness [Unknown]
  - Skin striae [Unknown]
  - Somnolence [Unknown]
  - Hypersomnia [Unknown]
  - Weight decreased [Unknown]
